FAERS Safety Report 5159411-1 (Version None)
Quarter: 2006Q4

REPORT INFORMATION
  Report Type: 
  Country: None (occurrence: None)
  Receive Date: 20061122
  Receipt Date: 20061122
  Transmission Date: 20070319
  Serious: Yes (Life-Threatening, Hospitalization)
  Sender: FDA-Public Use
  Company Number: None

PATIENT
  Sex: Female
  Weight: 63.5036 kg

DRUGS (1)
  1. ORAJEL ADVANCED TOOTH DESENSITIZER [Suspect]
     Indication: SENSITIVITY OF TEETH
     Dosage: APPLIED FOR 5 MINUTE  3 TIMES SWAB
     Dates: start: 20061102

REACTIONS (10)
  - BLISTER [None]
  - CAUSTIC INJURY [None]
  - CONDITION AGGRAVATED [None]
  - GINGIVAL INJURY [None]
  - HEADACHE [None]
  - MEDICATION ERROR [None]
  - PHARMACEUTICAL PRODUCT COMPLAINT [None]
  - PHARYNGEAL OEDEMA [None]
  - SKIN LACERATION [None]
  - STOMATITIS [None]
